FAERS Safety Report 16318662 (Version 1)
Quarter: 2019Q2

REPORT INFORMATION
  Report Type: Spontaneous
  Country: CN (occurrence: CN)
  Receive Date: 20190516
  Receipt Date: 20190516
  Transmission Date: 20190711
  Serious: Yes (Hospitalization, Other)
  Sender: FDA-Public Use
  Company Number: CN-BAUSCH-BL-2019-013908

PATIENT
  Age: 67 Year
  Sex: Female

DRUGS (1)
  1. DEXAMETHASONE. [Suspect]
     Active Substance: DEXAMETHASONE
     Indication: PLASMA CELL MYELOMA
     Dosage: 40 MG D1-2, 4-5, 8-9, 11-12
     Route: 065
     Dates: start: 201210, end: 2012

REACTIONS (5)
  - Hypopituitarism [Recovered/Resolved]
  - Hyponatraemia [Recovered/Resolved]
  - Hypoglycaemic coma [Recovered/Resolved]
  - Empty sella syndrome [Recovered/Resolved]
  - Diarrhoea [Recovering/Resolving]

NARRATIVE: CASE EVENT DATE: 201212
